FAERS Safety Report 6597118-4 (Version None)
Quarter: 2010Q1

REPORT INFORMATION
  Report Type: 
  Country: None (occurrence: None)
  Receive Date: 20100212
  Receipt Date: 20100202
  Transmission Date: 20100710
  Serious: Yes (Hospitalization)
  Sender: FDA-Public Use
  Company Number: 2009029465

PATIENT
  Age: 91 Year
  Sex: Male
  Weight: 149.8 kg

DRUGS (2)
  1. TREANDA [Suspect]
     Indication: CHRONIC LYMPHOCYTIC LEUKAEMIA
     Dosage: 131 MG, DAYS 1 + 2 EVERY 28 DAYSM INTRAVENOUS
     Route: 042
     Dates: start: 20090909, end: 20091211
  2. RITUXAN [Concomitant]

REACTIONS (2)
  - HAEMATURIA [None]
  - THROMBOCYTOPENIA [None]
